FAERS Safety Report 9275007 (Version 1)
Quarter: 2013Q2

REPORT INFORMATION
  Report Type: Spontaneous
  Country: US (occurrence: None)
  Receive Date: 20130501
  Receipt Date: 20130501
  Transmission Date: 20140414
  Serious: Yes (Life-Threatening, Hospitalization)
  Sender: FDA-Public Use
  Company Number: None

PATIENT
  Age: 78 Year
  Sex: Female
  Weight: 104.1 kg

DRUGS (1)
  1. ISOVUE 300 [Suspect]
     Indication: PULMONARY MASS
     Route: 042
     Dates: start: 20130429, end: 20130429

REACTIONS (5)
  - Cough [None]
  - Acute respiratory failure [None]
  - Acute pulmonary oedema [None]
  - Electrocardiogram ST segment elevation [None]
  - Cardio-respiratory arrest [None]
